FAERS Safety Report 5817720-4 (Version None)
Quarter: 2008Q3

REPORT INFORMATION
  Report Type: 
  Country: None (occurrence: None)
  Receive Date: 20080722
  Receipt Date: 20080715
  Transmission Date: 20090109
  Serious: Yes (Hospitalization)
  Sender: FDA-Public Use
  Company Number: PHHY2008DE14364

PATIENT
  Age: 80 Year
  Sex: Female

DRUGS (2)
  1. RASILEZ [Suspect]
     Indication: HYPERTENSION
     Dosage: 300 MG, QD
  2. ANTIHYPERTENSIVES [Concomitant]

REACTIONS (1)
  - HYPONATRAEMIA [None]
